FAERS Safety Report 23665983 (Version 2)
Quarter: 2024Q1

REPORT INFORMATION
  Report Type: Spontaneous
  Country: US (occurrence: US)
  Receive Date: 20240323
  Receipt Date: 20240331
  Transmission Date: 20240410
  Serious: Yes (Hospitalization, Other)
  Sender: FDA-Public Use
  Company Number: US-TORRENT-00013475

PATIENT
  Age: 77 Year
  Sex: Male

DRUGS (1)
  1. OLANZAPINE [Suspect]
     Active Substance: OLANZAPINE
     Indication: Product used for unknown indication
     Dosage: UNKNOWN
     Route: 065

REACTIONS (6)
  - Hallucination [Recovering/Resolving]
  - Parkinsonism [Recovering/Resolving]
  - Mental status changes [Recovering/Resolving]
  - Anticholinergic syndrome [Recovering/Resolving]
  - Delirium [Recovering/Resolving]
  - Cerebral ischaemia [Recovering/Resolving]
